FAERS Safety Report 9478968 (Version 1)
Quarter: 2013Q3

REPORT INFORMATION
  Report Type: Spontaneous
  Country: GB (occurrence: GB)
  Receive Date: 20130827
  Receipt Date: 20130827
  Transmission Date: 20140515
  Serious: Yes (Other)
  Sender: FDA-Public Use
  Company Number: GB-TEVA-428136ISR

PATIENT
  Age: 78 Year
  Sex: Male
  Weight: 82.56 kg

DRUGS (16)
  1. FEXOFENADINE [Suspect]
  2. DIGOXIN [Concomitant]
     Dates: start: 20130416, end: 20130807
  3. CALCICHEW D3 [Concomitant]
     Dates: start: 20130429
  4. FUROSEMIDE [Concomitant]
     Dates: start: 20130429, end: 20130807
  5. PREDNISOLONE [Concomitant]
     Dates: start: 20130429, end: 20130807
  6. SPIRONOLACTONE [Concomitant]
     Dates: start: 20130429, end: 20130807
  7. TIOTROPIUM [Concomitant]
     Dates: start: 20130429
  8. VENTOLIN [Concomitant]
     Dates: start: 20130429, end: 20130807
  9. PROSTAP [Concomitant]
     Dates: start: 20130429, end: 20130722
  10. ALLOPURINOL [Concomitant]
     Dates: start: 20130507, end: 20130807
  11. CO-AMOXICLAV [Concomitant]
     Dates: start: 20130508, end: 20130604
  12. COLCHICINE [Concomitant]
     Dates: start: 20130603, end: 20130615
  13. COLCHICINE [Concomitant]
     Dates: start: 20130701, end: 20130713
  14. CETIRIZINE [Concomitant]
     Dates: start: 20130617, end: 20130717
  15. DOXYCYCLINE [Concomitant]
     Dates: start: 20130621, end: 20130628
  16. DOXYCYCLINE [Concomitant]
     Dates: start: 20130711, end: 20130718

REACTIONS (2)
  - Mood altered [Recovered/Resolved]
  - Aggression [Recovered/Resolved]
